FAERS Safety Report 8665772 (Version 4)
Quarter: 2012Q4

REPORT INFORMATION
  Report Type: 
  Country: US (occurrence: US)
  Receive Date: 20120716
  Receipt Date: 20120925
  Transmission Date: 20130627
  Serious: No
  Sender: FDA-Public Use
  Company Number: PHEH2012US013743

PATIENT
  Age: 47 Year
  Sex: Male

DRUGS (8)
  1. TASIGNA [Suspect]
     Dosage: 400 mg, BID
     Route: 048
     Dates: start: 201203
  2. ROPINIROLE [Concomitant]
     Dosage: 0.5 mg, UNK
  3. SIMVASTATIN [Concomitant]
     Dosage: 10 mg, UNK
  4. PROPRANOLOL [Concomitant]
     Dosage: 20 mg, UNK
  5. ALPRAZOLAM [Concomitant]
     Dosage: 0.25 mg, UNK
  6. ALLOPURINOL [Concomitant]
     Dosage: 100 mg, UNK
  7. CARISOPRODOL [Concomitant]
     Dosage: 250 mg, UNK
  8. BENADRYL [Concomitant]
     Dosage: 25 mg, UNK

REACTIONS (9)
  - Drug intolerance [Unknown]
  - Piloerection [Unknown]
  - Skin disorder [Unknown]
  - Fatigue [Unknown]
  - Bone pain [Unknown]
  - Rash [Unknown]
  - Pain [Unknown]
  - Skin papilloma [Unknown]
  - Rhinorrhoea [Unknown]
